FAERS Safety Report 12216125 (Version 2)
Quarter: 2016Q2

REPORT INFORMATION
  Report Type: Spontaneous
  Country: IT (occurrence: IT)
  Receive Date: 20160329
  Receipt Date: 20160406
  Transmission Date: 20160815
  Serious: Yes (Hospitalization)
  Sender: FDA-Public Use
  Company Number: IT-AUROBINDO-AUR-APL-2016-03758

PATIENT
  Age: 42 Year
  Sex: Male

DRUGS (4)
  1. DEPAKIN CHRONO [Suspect]
     Active Substance: VALPROIC ACID
     Indication: BIPOLAR DISORDER
     Dosage: 5 G, TOTAL
     Route: 048
     Dates: start: 20160208, end: 20160208
  2. CARDIRENE [Suspect]
     Active Substance: ASPIRIN DL-LYSINE
     Indication: PAIN
     Dosage: 375 MG, TOTAL
     Route: 048
     Dates: start: 20160208, end: 20160208
  3. RISPERIDONE FILM-COATED TABLETS [Suspect]
     Active Substance: RISPERIDONE
     Indication: BIPOLAR DISORDER
     Dosage: 32 MG, UNK
     Route: 048
     Dates: start: 20160208, end: 20160208
  4. DELORAZEPAM [Suspect]
     Active Substance: DELORAZEPAM
     Indication: ANXIETY
     Dosage: 10 MG, TOTAL
     Route: 065
     Dates: start: 20160208, end: 20160208

REACTIONS (3)
  - Psychomotor retardation [Recovered/Resolved]
  - Sopor [Recovered/Resolved]
  - Overdose [Recovered/Resolved]

NARRATIVE: CASE EVENT DATE: 20160208
